FAERS Safety Report 4724954-9 (Version None)
Quarter: 2005Q3

REPORT INFORMATION
  Report Type: 
  Country: None (occurrence: None)
  Receive Date: 20050726
  Receipt Date: 19841212
  Transmission Date: 20060218
  Serious: Yes (Hospitalization, Disabling, Congenital Anomaly)
  Sender: FDA-Public Use
  Company Number: US-ROCHE-850200024001

PATIENT
  Sex: Male

DRUGS (5)
  1. ACCUTANE [Suspect]
     Indication: DRUG USE FOR UNKNOWN INDICATION
     Dates: start: 19820615
  2. XANAX [Concomitant]
     Dates: start: 19840415, end: 19840507
  3. TOFRANIL [Concomitant]
     Dates: start: 19840415, end: 19840507
  4. AMPICILLIN [Concomitant]
     Dates: start: 19840415, end: 19840507
  5. TAGAMET [Concomitant]
     Dates: start: 19840415, end: 19840507

REACTIONS (45)
  - ACROCHORDON [None]
  - ALOPECIA [None]
  - ANXIETY [None]
  - BACTERIA URINE [None]
  - BODY HEIGHT BELOW NORMAL [None]
  - BREECH DELIVERY [None]
  - BREECH PRESENTATION [None]
  - CANDIDIASIS [None]
  - CEREBRAL DISORDER [None]
  - CEREBRAL VENTRICLE DILATATION [None]
  - CONGENITAL CENTRAL NERVOUS SYSTEM ANOMALY [None]
  - CONGENITAL HYDROCEPHALUS [None]
  - CONGENITAL MUSCULOSKELETAL ANOMALY [None]
  - CONVULSION [None]
  - CRYPTORCHISM [None]
  - CRYSTAL URINE PRESENT [None]
  - DIARRHOEA [None]
  - EDUCATIONAL PROBLEM [None]
  - FAILED INDUCTION OF LABOUR [None]
  - FOETAL DISORDER [None]
  - FOETAL GROWTH RETARDATION [None]
  - GASTRIC DISORDER [None]
  - GASTROENTERITIS [None]
  - HYPERHIDROSIS [None]
  - ILL-DEFINED DISORDER [None]
  - INGUINAL HERNIA [None]
  - IRRITABILITY [None]
  - LETHARGY [None]
  - LIMB REDUCTION DEFECT [None]
  - OESOPHAGEAL ATRESIA [None]
  - OTITIS MEDIA [None]
  - PAIN [None]
  - PNEUMONIA ASPIRATION [None]
  - PNEUMONITIS [None]
  - PORENCEPHALY [None]
  - PREMATURE LABOUR [None]
  - PROTEIN URINE [None]
  - PROTEIN URINE PRESENT [None]
  - PYREXIA [None]
  - REPRODUCTIVE TRACT HYPOPLASIA, MALE [None]
  - RESPIRATORY TRACT INFECTION VIRAL [None]
  - TRANSMISSION OF DRUG VIA SEMEN [None]
  - VIRAL INFECTION [None]
  - VOMITING [None]
  - WEIGHT CONTROL [None]
